FAERS Safety Report 19929028 (Version 1)
Quarter: 2021Q4

REPORT INFORMATION
  Report Type: Spontaneous
  Country: CN (occurrence: CN)
  Receive Date: 20211007
  Receipt Date: 20211007
  Transmission Date: 20220303
  Serious: Yes (Other)
  Sender: FDA-Public Use
  Company Number: CN-SA-SAC20211006000234

PATIENT
  Age: 65 Year
  Sex: Female

DRUGS (2)
  1. ANTI-THYMOCYTE GLOBULIN (RABBIT) NOS [Suspect]
     Active Substance: LAPINE T-LYMPHOCYTE IMMUNE GLOBULIN
     Indication: Acute myeloid leukaemia
     Dosage: 75 MG
     Route: 041
     Dates: start: 20210831, end: 20210901
  2. DEXTROSE [Suspect]
     Active Substance: DEXTROSE
     Dosage: 500 ML
     Route: 041
     Dates: start: 20210831, end: 20210901

REACTIONS (4)
  - Temperature intolerance [Recovering/Resolving]
  - Hyperpyrexia [Recovering/Resolving]
  - Blood pressure increased [Recovering/Resolving]
  - Heart rate increased [Recovering/Resolving]

NARRATIVE: CASE EVENT DATE: 20210831
